FAERS Safety Report 7228591 (Version 3)
Quarter: 2013Q2

REPORT INFORMATION
  Report Type: Report from Study
  Country: NL (occurrence: NL)
  Receive Date: 20091223
  Receipt Date: 20130619
  Transmission Date: 20140414
  Serious: Yes (Other)
  Sender: FDA-Public Use
  Company Number: PHHY2009NL55077

PATIENT
  Sex: Female

DRUGS (16)
  1. ZOMETA [Suspect]
     Indication: BREAST CANCER METASTATIC
     Dosage: 4 MG/100 ML, ONCE EVERY 84 DAYS, UNK
     Route: 041
     Dates: start: 20080205
  2. ZOMETA [Suspect]
     Dosage: 4 MG/100 ML, ONCE EVERY 84 DAYS,
     Route: 041
     Dates: start: 20080305
  3. ZOMETA [Suspect]
     Dosage: 4 MG/100 ML, ONCE EVERY 84 DAYS,
     Route: 041
     Dates: start: 20080402
  4. ZOMETA [Suspect]
     Dosage: 4 MG/100 ML, ONCE EVERY 84 DAYS,
     Route: 041
     Dates: start: 20080429
  5. ZOMETA [Suspect]
     Dosage: 4 MG/100 ML, ONCE EVERY 84 DAYS,
     Route: 041
     Dates: start: 20080528
  6. ZOMETA [Suspect]
     Dosage: 4 MG/100 ML, ONCE EVERY 84 DAYS
     Route: 041
     Dates: start: 20080625
  7. ZOMETA [Suspect]
     Dosage: 4 MG/100 ML, ONCE EVERY 84 DAYS
     Route: 041
     Dates: start: 20080723
  8. ZOMETA [Suspect]
     Dosage: 4 MG/100 ML, ONCE EVERY 84 DAYS
     Route: 041
     Dates: start: 20080820
  9. ZOMETA [Suspect]
     Dosage: 4 MG/100 ML, ONCE EVERY 84 DAYS,
     Route: 041
     Dates: start: 20080917
  10. ZOMETA [Suspect]
     Dosage: 4 MG/100 ML, ONCE EVERY 84 DAYS,
     Route: 041
     Dates: start: 20081209
  11. ZOMETA [Suspect]
     Dosage: 4 MG/100 ML, ONCE EVERY 84 DAYS,
     Route: 041
     Dates: start: 20090116
  12. ZOMETA [Suspect]
     Dosage: 4 MG/100 ML, ONCE EVERY 84 DAYS,
     Route: 041
     Dates: start: 20090414
  13. ZOMETA [Suspect]
     Dosage: 4 MG/100 ML, ONCE EVERY 84 DAYS,
     Route: 041
     Dates: start: 20090630
  14. ZOMETA [Suspect]
     Dosage: 4 MG/100 ML, ONCE EVERY 84 DAYS,
     Route: 041
     Dates: start: 20090921
  15. ZOMETA [Suspect]
     Dosage: 4 MG/100 ML, ONCE EVERY 84 DAYS,
     Route: 041
     Dates: start: 20121015
  16. ZOMETA [Suspect]
     Dosage: 4 MG/100 ML, ONCE EVERY 84 DAYS
     Route: 041
     Dates: start: 20130108

REACTIONS (4)
  - Terminal state [Unknown]
  - Osteitis [Not Recovered/Not Resolved]
  - Loose tooth [Unknown]
  - Pain in jaw [Not Recovered/Not Resolved]
